FAERS Safety Report 4608270-1 (Version None)
Quarter: 2005Q1

REPORT INFORMATION
  Report Type: 
  Country: None (occurrence: None)
  Receive Date: 20050311
  Receipt Date: 20050227
  Transmission Date: 20050727
  Serious: No
  Sender: FDA-Public Use
  Company Number: 05H-013-0292281-00

PATIENT
  Age: 79 Year
  Sex: Female
  Weight: 65 kg

DRUGS (4)
  1. ATRACURIUM BESYLATE [Suspect]
     Dosage: INJECTION
  2. ROPIVACAINE [Suspect]
     Dosage: 0.5% 20 MGL, INJECTION
  3. LIIDOCAINE [Concomitant]
  4. PROPOFOL [Concomitant]

REACTIONS (7)
  - ACCIDENTAL EXPOSURE [None]
  - ANAESTHETIC COMPLICATION NEUROLOGICAL [None]
  - DRUG INTERACTION [None]
  - DYSPNOEA [None]
  - MEDICATION ERROR [None]
  - PARALYSIS [None]
  - SPEECH DISORDER [None]
